FAERS Safety Report 10029686 (Version 1)
Quarter: 2014Q1

REPORT INFORMATION
  Report Type: Spontaneous
  Country: US (occurrence: None)
  Receive Date: 20140321
  Receipt Date: 20140321
  Transmission Date: 20141002
  Serious: Yes (Other)
  Sender: FDA-Public Use
  Company Number: None

PATIENT
  Age: 34 Year
  Sex: Male
  Weight: 99.79 kg

DRUGS (2)
  1. CANNASTRIPS [Suspect]
     Indication: PAIN MANAGEMENT
     Dates: start: 20140221, end: 20140225
  2. WHITE RECLUSE MARIJUANA FLOWERS [Suspect]
     Dates: start: 20140114, end: 20140114

REACTIONS (5)
  - Gastrointestinal disorder [None]
  - Impaired work ability [None]
  - Product substitution issue [None]
  - Malaise [None]
  - Product tampering [None]
